FAERS Safety Report 8023837-9 (Version None)
Quarter: 2012Q1

REPORT INFORMATION
  Report Type: 
  Country: None (occurrence: None)
  Receive Date: 20120103
  Receipt Date: 20120103
  Transmission Date: 20120608
  Serious: Yes (Other)
  Sender: FDA-Public Use
  Company Number: None

PATIENT
  Sex: Female

DRUGS (1)
  1. BOTOX [Suspect]
     Indication: MUSCULOSKELETAL STIFFNESS
     Dosage: INJECTABLE EVERY 3 MONTHS
     Dates: start: 20111207

REACTIONS (4)
  - BLINDNESS TRANSIENT [None]
  - POOR QUALITY DRUG ADMINISTERED [None]
  - GAIT DISTURBANCE [None]
  - LACRIMATION INCREASED [None]
